FAERS Safety Report 26051642 (Version 1)
Quarter: 2025Q4

REPORT INFORMATION
  Report Type: Report from Study
  Country: CN (occurrence: CN)
  Receive Date: 20251117
  Receipt Date: 20251117
  Transmission Date: 20260118
  Serious: Yes (Other)
  Sender: ABBVIE
  Company Number: CN-ABBVIE-6546289

PATIENT
  Age: 49 Year
  Sex: Male

DRUGS (1)
  1. UPADACITINIB [Suspect]
     Active Substance: UPADACITINIB
     Indication: Dermatitis atopic
     Dosage: FREQUENCY TEXT: ONCE EVERY 5 OR 6 DAYS
     Route: 048
     Dates: start: 20250702

REACTIONS (5)
  - Haemorrhoidal haemorrhage [Recovering/Resolving]
  - Anaemia [Unknown]
  - Dizziness [Unknown]
  - Constipation [Unknown]
  - Mobility decreased [Unknown]

NARRATIVE: CASE EVENT DATE: 20250101
